FAERS Safety Report 5517288-6 (Version None)
Quarter: 2007Q4

REPORT INFORMATION
  Report Type: 
  Country: None (occurrence: None)
  Receive Date: 20071114
  Receipt Date: 20071003
  Transmission Date: 20080405
  Serious: No
  Sender: FDA-Public Use
  Company Number: A0685482A

PATIENT
  Sex: Female

DRUGS (2)
  1. COMMIT [Suspect]
  2. UNSPECIFIED MEDICATION [Concomitant]

REACTIONS (2)
  - HEART RATE INCREASED [None]
  - HYPERTENSION [None]
